FAERS Safety Report 9236070 (Version 1)
Quarter: 2013Q2

REPORT INFORMATION
  Report Type: Spontaneous
  Country: US (occurrence: US)
  Receive Date: 20130417
  Receipt Date: 20130417
  Transmission Date: 20140414
  Serious: No
  Sender: FDA-Public Use
  Company Number: US-ABBOTT-12P-163-0965206-00

PATIENT
  Age: 64 Year
  Sex: Male
  Weight: 73 kg

DRUGS (11)
  1. ZEMPLAR 2MCG/ML INJECTION, 1ML FT VIAL [Suspect]
     Indication: HYPERPARATHYROIDISM
     Dosage: 2MCG/ML: 1ML
     Route: 042
     Dates: start: 20120423, end: 20120608
  2. ASPIRIN [Concomitant]
     Indication: CORONARY ARTERY BYPASS
  3. COREG [Concomitant]
     Indication: CORONARY ARTERY BYPASS
  4. LIPITOR [Concomitant]
     Indication: HYPERCHOLESTEROLAEMIA
  5. NEPHROCAPS [Concomitant]
     Indication: VITAMIN SUPPLEMENTATION
  6. NEURONTIN [Concomitant]
     Indication: NEUROPATHY PERIPHERAL
  7. INSULIN [Concomitant]
     Indication: DIABETES MELLITUS
  8. PHOSLO [Concomitant]
     Indication: DIALYSIS
  9. SYNTHROID [Concomitant]
     Indication: HYPOTHYROIDISM
  10. VITAMIN C [Concomitant]
     Indication: VITAMIN SUPPLEMENTATION
  11. COUMADIN [Concomitant]
     Indication: CORONARY ARTERY BYPASS

REACTIONS (4)
  - Abdominal pain upper [Recovered/Resolved]
  - Muscle spasms [Recovered/Resolved]
  - Nausea [Recovered/Resolved]
  - Vomiting [Recovered/Resolved]
